FAERS Safety Report 18773322 (Version 1)
Quarter: 2021Q1

REPORT INFORMATION
  Report Type: Spontaneous
  Country: US (occurrence: US)
  Receive Date: 20210122
  Receipt Date: 20210122
  Transmission Date: 20210419
  Serious: Yes (Other)
  Sender: FDA-Public Use
  Company Number: None

PATIENT
  Sex: Male

DRUGS (1)
  1. ZOCOR [Suspect]
     Active Substance: SIMVASTATIN

REACTIONS (1)
  - Low density lipoprotein abnormal [None]
